FAERS Safety Report 6387184-3 (Version None)
Quarter: 2009Q4

REPORT INFORMATION
  Report Type: 
  Country: None (occurrence: None)
  Receive Date: 20091002
  Receipt Date: 20090923
  Transmission Date: 20100525
  Serious: Yes (Hospitalization)
  Sender: FDA-Public Use
  Company Number: US-WATSON-2009-07907

PATIENT
  Sex: Female

DRUGS (1)
  1. GELNIQUE (WATSON LABORATORIES) [Suspect]
     Indication: DRUG USE FOR UNKNOWN INDICATION
     Dosage: 1 APPLICATION SINGLE USE
     Route: 061
     Dates: start: 20090921, end: 20090921

REACTIONS (3)
  - ASTHENIA [None]
  - COLD SWEAT [None]
  - DRY MOUTH [None]
